FAERS Safety Report 6509753-X (Version None)
Quarter: 2009Q4

REPORT INFORMATION
  Report Type: 
  Country: None (occurrence: None)
  Receive Date: 20091222
  Receipt Date: 20091217
  Transmission Date: 20100525
  Serious: Yes (Life-Threatening, Hospitalization)
  Sender: FDA-Public Use
  Company Number: FR-BAYER-200943189GPV

PATIENT
  Age: 50 Year
  Sex: Male

DRUGS (4)
  1. NEXAVAR [Suspect]
     Indication: HEPATIC NEOPLASM MALIGNANT
     Route: 048
     Dates: start: 20090218, end: 20090227
  2. PROPRANOLOL [Concomitant]
  3. CALCIUM D3 [Concomitant]
  4. PHOSPHONEUROS [Concomitant]

REACTIONS (11)
  - COMA [None]
  - CYTOLYTIC HEPATITIS [None]
  - GENERAL PHYSICAL HEALTH DETERIORATION [None]
  - HEPATIC ENCEPHALOPATHY [None]
  - HEPATIC FAILURE [None]
  - HEPATOMEGALY [None]
  - HYPOCALCAEMIA [None]
  - HYPOPHOSPHATAEMIA [None]
  - JAUNDICE [None]
  - PROTHROMBIN TIME PROLONGED [None]
  - RALES [None]
